FAERS Safety Report 8623740 (Version 3)
Quarter: 2014Q2

REPORT INFORMATION
  Report Type: Spontaneous
  Country: US (occurrence: US)
  Receive Date: 20120620
  Receipt Date: 20140404
  Transmission Date: 20141212
  Serious: Yes (Hospitalization)
  Sender: FDA-Public Use
  Company Number: US-ASTRAZENECA-2012SE36481

PATIENT
  Age: 52 Year
  Sex: Female

DRUGS (22)
  1. NEXIUM [Suspect]
     Indication: GASTROOESOPHAGEAL REFLUX DISEASE
     Dosage: DAILY
     Route: 048
     Dates: start: 2001, end: 201107
  2. NEXIUM [Suspect]
     Indication: GASTROOESOPHAGEAL REFLUX DISEASE
     Route: 048
     Dates: start: 20021213
  3. GABAPENTIN [Concomitant]
  4. BUPROPION [Concomitant]
  5. SIMVASTATIN [Concomitant]
  6. DOXEPIN HCL [Concomitant]
  7. MYLAN [Concomitant]
  8. PROMETHAZINE [Concomitant]
  9. PHENERGAN [Concomitant]
  10. CYCLOBENZAPRINE [Concomitant]
  11. FLEXERIL [Concomitant]
  12. TRAMADOL/APAP [Concomitant]
     Dosage: 37.5 MG/325 MG
     Dates: start: 20120314
  13. RANITIDINE [Concomitant]
     Dates: start: 20120210
  14. HYDROCODONE/ACETAMINOPHEN [Concomitant]
     Dosage: 5-500 MG
     Dates: start: 20120207
  15. IBUPROFEN [Concomitant]
     Route: 048
     Dates: start: 20100608
  16. NIASPAN [Concomitant]
     Route: 048
     Dates: start: 20090120
  17. METHYLPREDNISOLONE [Concomitant]
     Dates: start: 20090720
  18. METHOCARBAMOL [Concomitant]
     Route: 048
     Dates: start: 20090720
  19. FERROUS SULFATE [Concomitant]
     Route: 048
     Dates: start: 20070125
  20. CELEBREX [Concomitant]
     Route: 048
     Dates: start: 20030508
  21. PREMARIN [Concomitant]
     Route: 048
     Dates: start: 20020613
  22. TRAZADONE [Concomitant]
     Route: 048
     Dates: start: 20040706

REACTIONS (7)
  - Blood disorder [Unknown]
  - Neuropathy peripheral [Unknown]
  - Osteoporosis [Unknown]
  - Multiple fractures [Unknown]
  - Spinal osteoarthritis [Unknown]
  - Arthritis [Unknown]
  - Gallbladder disorder [Unknown]
